FAERS Safety Report 4443196-8 (Version None)
Quarter: 2004Q3

REPORT INFORMATION
  Report Type: 
  Country: None (occurrence: None)
  Receive Date: 20040907
  Receipt Date: 20040907
  Transmission Date: 20050211
  Serious: No
  Sender: FDA-Public Use
  Company Number: None

PATIENT
  Age: 36 Year
  Sex: Female
  Weight: 65.7716 kg

DRUGS (3)
  1. PAROXETINE HCL [Suspect]
     Indication: ANXIETY DISORDER
     Dosage: 30 MG   1 TABLET   ORAL
     Route: 048
     Dates: start: 20000101, end: 20040903
  2. PAROXETINE HCL [Suspect]
     Indication: PANIC ATTACK
     Dosage: 30 MG   1 TABLET   ORAL
     Route: 048
     Dates: start: 20000101, end: 20040903
  3. PSYCHOTHERAPY [Concomitant]

REACTIONS (3)
  - DRUG WITHDRAWAL SYNDROME [None]
  - HANGOVER [None]
  - MEDICATION ERROR [None]
